FAERS Safety Report 14259085 (Version 1)
Quarter: 2017Q4

REPORT INFORMATION
  Report Type: Spontaneous
  Country: US (occurrence: US)
  Receive Date: 20171207
  Receipt Date: 20171207
  Transmission Date: 20180321
  Serious: Yes (Other)
  Sender: FDA-Public Use
  Company Number: US-PERRIGO-17US030396

PATIENT
  Age: 31 Year
  Sex: Female
  Weight: 65.76 kg

DRUGS (13)
  1. SALINE NASAL [Suspect]
     Active Substance: SODIUM CHLORIDE
     Indication: NASAL DRYNESS
     Dosage: ONE SPRAY IN EACH NOSTRIL, SINGLE
     Route: 045
     Dates: start: 20171125, end: 20171125
  2. KLONOPIN [Concomitant]
     Active Substance: CLONAZEPAM
     Indication: BIPOLAR DISORDER
  3. LAMICTAL [Concomitant]
     Active Substance: LAMOTRIGINE
     Indication: GENERALISED ANXIETY DISORDER
     Dosage: UNK
     Route: 048
  4. GEODON [Concomitant]
     Active Substance: ZIPRASIDONE HYDROCHLORIDE\ZIPRASIDONE MESYLATE
     Indication: BIPOLAR DISORDER
  5. KLONOPIN [Concomitant]
     Active Substance: CLONAZEPAM
     Indication: GENERALISED ANXIETY DISORDER
     Dosage: UNK
     Route: 048
  6. LAMICTAL [Concomitant]
     Active Substance: LAMOTRIGINE
     Indication: BIPOLAR DISORDER
  7. AMOXICILLIN. [Concomitant]
     Active Substance: AMOXICILLIN
     Indication: TOOTH EXTRACTION
     Dosage: UNK
     Route: 048
     Dates: start: 20171110, end: 20171129
  8. TOPAMAX [Concomitant]
     Active Substance: TOPIRAMATE
     Indication: GENERALISED ANXIETY DISORDER
     Dosage: UNK
     Route: 048
  9. ATARAX [Concomitant]
     Active Substance: HYDROXYZINE HYDROCHLORIDE
     Indication: GENERALISED ANXIETY DISORDER
     Dosage: UNK
     Route: 048
     Dates: start: 201706
  10. GEODON [Concomitant]
     Active Substance: ZIPRASIDONE HYDROCHLORIDE\ZIPRASIDONE MESYLATE
     Indication: GENERALISED ANXIETY DISORDER
     Dosage: UNK
     Route: 048
     Dates: start: 201709
  11. AMOXICILLIN. [Concomitant]
     Active Substance: AMOXICILLIN
     Indication: SINUSITIS
  12. TOPAMAX [Concomitant]
     Active Substance: TOPIRAMATE
     Indication: BIPOLAR DISORDER
  13. ATARAX [Concomitant]
     Active Substance: HYDROXYZINE HYDROCHLORIDE
     Indication: BIPOLAR DISORDER

REACTIONS (11)
  - Facial pain [Recovering/Resolving]
  - Dyspnoea [Recovered/Resolved]
  - Burning sensation [Recovering/Resolving]
  - Dizziness [Not Recovered/Not Resolved]
  - Dysphagia [Recovered/Resolved]
  - Sinus pain [Recovering/Resolving]
  - Nausea [Not Recovered/Not Resolved]
  - Hypersensitivity [Recovered/Resolved]
  - Throat irritation [Recovering/Resolving]
  - Oropharyngeal pain [Recovering/Resolving]
  - Underdose [Recovered/Resolved]

NARRATIVE: CASE EVENT DATE: 2016
